FAERS Safety Report 8574664-5 (Version None)
Quarter: 2012Q3

REPORT INFORMATION
  Report Type: 
  Country: None (occurrence: None)
  Receive Date: 20120807
  Receipt Date: 20120730
  Transmission Date: 20120928
  Serious: Yes (Hospitalization, Other)
  Sender: FDA-Public Use
  Company Number: US-BRISTOL-MYERS SQUIBB COMPANY-16819211

PATIENT
  Age: 73 Year
  Sex: Male

DRUGS (5)
  1. YERVOY [Suspect]
     Dosage: 1 DOSE.
  2. DEXAMETHASONE [Concomitant]
  3. ROBAXIN [Concomitant]
  4. VICODIN [Concomitant]
  5. MS CONTIN [Concomitant]

REACTIONS (1)
  - ATRIAL FIBRILLATION [None]
